FAERS Safety Report 4348371-9 (Version None)
Quarter: 2004Q2

REPORT INFORMATION
  Report Type: 
  Country: None (occurrence: None)
  Receive Date: 20040427
  Receipt Date: 20040305
  Transmission Date: 20050107
  Serious: Yes (Hospitalization, Disabling)
  Sender: FDA-Public Use
  Company Number: PHNU2004DE01127

PATIENT
  Age: 55 Year
  Sex: Male
  Weight: 95 kg

DRUGS (3)
  1. SANDIMMUNE [Suspect]
     Indication: RENAL TRANSPLANT
     Dosage: 175MG/DAY
     Route: 048
     Dates: start: 20000504, end: 20030205
  2. DECORTIN [Suspect]
     Indication: IMMUNOSUPPRESSION
     Dosage: 4MG/DAY
     Route: 048
     Dates: start: 20000504
  3. CELLCEPT [Suspect]
     Indication: IMMUNOSUPPRESSION
     Dosage: 1500MG/DAY
     Route: 048
     Dates: start: 20000504

REACTIONS (11)
  - AMPUTATION [None]
  - ARTERIOVENOUS SHUNT OPERATION [None]
  - C-REACTIVE PROTEIN INCREASED [None]
  - CORONARY ARTERY DISEASE [None]
  - DIALYSIS [None]
  - ESCHERICHIA INFECTION [None]
  - FOOT AMPUTATION [None]
  - MYOCARDIAL INFARCTION [None]
  - PNEUMONIA [None]
  - RENAL FAILURE ACUTE [None]
  - UROSEPSIS [None]
